FAERS Safety Report 11150914 (Version 2)
Quarter: 2015Q2

REPORT INFORMATION
  Report Type: Spontaneous
  Country: RU (occurrence: None)
  Receive Date: 20150528
  Receipt Date: 20150625
  Transmission Date: 20150821
  Serious: Yes (Other)
  Sender: FDA-Public Use
  Company Number: B1027998A

PATIENT
  Sex: Female

DRUGS (7)
  1. KIVEXA [Suspect]
     Active Substance: ABACAVIR SULFATE\LAMIVUDINE
     Indication: HIV INFECTION
     Dates: start: 201405, end: 201405
  2. COMBIVIR [Suspect]
     Active Substance: LAMIVUDINE\ZIDOVUDINE
     Indication: HIV INFECTION
     Dates: start: 201309, end: 201405
  3. KALETRA [Suspect]
     Active Substance: LOPINAVIR\RITONAVIR
     Indication: HIV INFECTION
     Dates: start: 201309
  4. ZIDO-H (ZIDOVUDINE) [Suspect]
     Active Substance: ZIDOVUDINE
     Indication: HIV INFECTION
     Dates: start: 201405
  5. LAMIVUDINE-HIV (LAMIVUDINE) [Suspect]
     Active Substance: LAMIVUDINE
     Indication: HIV INFECTION
     Dates: start: 201405
  6. NIKAVIR (PHOSPHAZIDE) [Suspect]
     Active Substance: PHOSPHAZIDE
     Indication: HIV INFECTION
     Dates: start: 201405
  7. RETROVIR [Suspect]
     Active Substance: ZIDOVUDINE
     Indication: HIV INFECTION
     Route: 042

REACTIONS (12)
  - Gestational diabetes [None]
  - Anaemia [None]
  - Dyspnoea [None]
  - Diarrhoea [None]
  - Premature labour [None]
  - Pregnancy [None]
  - Caesarean section [None]
  - Pharyngeal oedema [None]
  - Drug hypersensitivity [None]
  - Pyrexia [None]
  - Arthralgia [None]
  - Exposure during pregnancy [None]

NARRATIVE: CASE EVENT DATE: 201405
